FAERS Safety Report 8980862 (Version 2)
Quarter: 2013Q1

REPORT INFORMATION
  Report Type: Spontaneous
  Country: US (occurrence: US)
  Receive Date: 20121221
  Receipt Date: 20130111
  Transmission Date: 20140127
  Serious: No
  Sender: FDA-Public Use
  Company Number: US-PFIZER INC-2012320611

PATIENT
  Age: 28 Year
  Sex: 0

DRUGS (1)
  1. PRISTIQ [Suspect]
     Dosage: 150 MG, 1X/DAY

REACTIONS (2)
  - Mental disorder [Unknown]
  - Stress [Unknown]
